FAERS Safety Report 23500956 (Version 1)
Quarter: 2024Q1

REPORT INFORMATION
  Report Type: Spontaneous
  Country: CH (occurrence: CH)
  Receive Date: 20240208
  Receipt Date: 20240208
  Transmission Date: 20240409
  Serious: Yes (Death)
  Sender: FDA-Public Use
  Company Number: CH-BAYER-2024A018413

PATIENT
  Age: 72 Year
  Sex: Male

DRUGS (1)
  1. STIVARGA [Suspect]
     Active Substance: REGORAFENIB
     Dosage: 80 MG, QD ( 2 TABLETS IN THE  MORNING, IF GOOD TOLERABILITY,  INCREASE TO 2 TABLETS TWICE A  DAY)
     Dates: start: 20230621

REACTIONS (2)
  - Death [Fatal]
  - Off label use [None]
